FAERS Safety Report 5149787-3 (Version None)
Quarter: 2006Q4

REPORT INFORMATION
  Report Type: 
  Country: None (occurrence: None)
  Receive Date: 20061108
  Receipt Date: 20061026
  Transmission Date: 20070319
  Serious: Yes (Hospitalization)
  Sender: FDA-Public Use
  Company Number: 2006BI015549

PATIENT
  Age: 50 Year
  Sex: Female
  Weight: 90.7194 kg

DRUGS (3)
  1. AVONEX [Suspect]
     Indication: MULTIPLE SCLEROSIS
     Dosage: 30 UG; QW; IM
     Route: 030
     Dates: start: 19960101, end: 20030801
  2. AVONEX [Suspect]
     Indication: MULTIPLE SCLEROSIS
     Dosage: 30 UG; QW; IM
     Route: 030
     Dates: start: 20030801, end: 20060801
  3. BACLOFEN [Concomitant]

REACTIONS (7)
  - CATHETER RELATED COMPLICATION [None]
  - CATHETER RELATED INFECTION [None]
  - DISEASE PROGRESSION [None]
  - INTERNATIONAL NORMALISED RATIO INCREASED [None]
  - LOWER LIMB FRACTURE [None]
  - MULTIPLE SCLEROSIS [None]
  - VENOUS THROMBOSIS [None]
